FAERS Safety Report 4718742-7 (Version None)
Quarter: 2005Q3

REPORT INFORMATION
  Report Type: 
  Country: None (occurrence: None)
  Receive Date: 20050719
  Receipt Date: 20050705
  Transmission Date: 20060218
  Serious: Yes (Hospitalization, Other)
  Sender: FDA-Public Use
  Company Number: 2005-07-0149

PATIENT
  Sex: Male

DRUGS (3)
  1. PEG-INTRON [Suspect]
     Indication: HEPATITIS C
     Dosage: 0.7-0.5 ML SUBCUTANEOUS
     Route: 058
  2. PEG-INTRON [Suspect]
     Indication: HEPATITIS C
     Dosage: SUBCUTANEOUS
     Route: 058
  3. RIBAVIRIN [Suspect]
     Indication: HEPATITIS C
     Dosage: 1000 MG QD ORAL
     Route: 048

REACTIONS (16)
  - AMNESIA [None]
  - ASTHENIA [None]
  - CELLULITIS [None]
  - COMA [None]
  - DEVICE FAILURE [None]
  - FALL [None]
  - GAIT DISTURBANCE [None]
  - HAEMOGLOBIN DECREASED [None]
  - HYPERSOMNIA [None]
  - HYPOXIA [None]
  - INCORRECT DOSE ADMINISTERED [None]
  - LACERATION [None]
  - LOSS OF CONSCIOUSNESS [None]
  - NEUROLOGICAL SYMPTOM [None]
  - PHARMACEUTICAL PRODUCT COMPLAINT [None]
  - RED BLOOD CELL COUNT DECREASED [None]
